FAERS Safety Report 11368499 (Version 6)
Quarter: 2016Q2

REPORT INFORMATION
  Report Type: Spontaneous
  Country: JP (occurrence: JP)
  Receive Date: 20150810
  Receipt Date: 20160524
  Transmission Date: 20160815
  Serious: Yes (Death, Hospitalization, Other)
  Sender: FDA-Public Use
  Company Number: ADR-2015-01502

PATIENT
  Age: 41 Year
  Sex: Male
  Weight: 33 kg

DRUGS (1)
  1. GABALON [Suspect]
     Active Substance: BACLOFEN
     Dosage: 42.55MCG/DAY
     Route: 037
     Dates: start: 20150109, end: 20150721

REACTIONS (5)
  - Productive cough [Fatal]
  - Infection [Fatal]
  - Asphyxia [Fatal]
  - Cardio-respiratory arrest [Fatal]
  - Pneumonia [Fatal]

NARRATIVE: CASE EVENT DATE: 20150723
